FAERS Safety Report 5629387-9 (Version None)
Quarter: 2008Q1

REPORT INFORMATION
  Report Type: 
  Country: None (occurrence: None)
  Receive Date: 20080218
  Receipt Date: 20080207
  Transmission Date: 20080703
  Serious: Yes (Other)
  Sender: FDA-Public Use
  Company Number: DE-TEVA-167333ISR

PATIENT
  Sex: Male

DRUGS (4)
  1. CARBOPLATIN CONCENTRATE FOR INFUSION 10MG/ML [Suspect]
  2. VINORELBINE [Concomitant]
  3. ENOXAPARIN SODIUM [Concomitant]
  4. ASPIRIN [Concomitant]

REACTIONS (1)
  - THROMBOCYTHAEMIA [None]
